FAERS Safety Report 8282457-1 (Version None)
Quarter: 2012Q2

REPORT INFORMATION
  Report Type: 
  Country: None (occurrence: None)
  Receive Date: 20120413
  Receipt Date: 20120411
  Transmission Date: 20120825
  Serious: Yes (Hospitalization, Other)
  Sender: FDA-Public Use
  Company Number: US-PFIZER INC-2012033606

PATIENT
  Sex: Female
  Weight: 79.365 kg

DRUGS (2)
  1. LYRICA [Suspect]
     Indication: NERVE INJURY
     Dosage: 150 MG, 3X/DAY
     Route: 048
     Dates: end: 20120101
  2. LYRICA [Suspect]
     Indication: COMPLEX REGIONAL PAIN SYNDROME

REACTIONS (11)
  - PAIN [None]
  - TRANSIENT ISCHAEMIC ATTACK [None]
  - PARAESTHESIA [None]
  - LIP SWELLING [None]
  - SPEECH DISORDER [None]
  - ACTIVITIES OF DAILY LIVING IMPAIRED [None]
  - MOVEMENT DISORDER [None]
  - BLINDNESS UNILATERAL [None]
  - HEADACHE [None]
  - BURNING SENSATION [None]
  - INSOMNIA [None]
